FAERS Safety Report 11560407 (Version 1)
Quarter: 2015Q3

REPORT INFORMATION
  Report Type: Spontaneous
  Country: US (occurrence: US)
  Receive Date: 20150928
  Receipt Date: 20150928
  Transmission Date: 20151125
  Serious: Yes (Death)
  Sender: FDA-Public Use
  Company Number: US-PFIZER INC-2015253603

PATIENT
  Age: 81 Year
  Sex: Male

DRUGS (1)
  1. SUTENT [Suspect]
     Active Substance: SUNITINIB MALATE
     Indication: RENAL CANCER
     Dosage: 50 MG, DAILY (28 DAYS ON/14 DAYS OFF)
     Route: 048
     Dates: start: 20150804

REACTIONS (1)
  - Death [Fatal]

NARRATIVE: CASE EVENT DATE: 20150808
